FAERS Safety Report 9103692 (Version 1)
Quarter: 2013Q1

REPORT INFORMATION
  Report Type: Spontaneous
  Country: US (occurrence: US)
  Receive Date: 20130219
  Receipt Date: 20130219
  Transmission Date: 20140127
  Serious: Yes (Other)
  Sender: FDA-Public Use
  Company Number: US-PFIZER INC-2013060111

PATIENT
  Sex: Male

DRUGS (3)
  1. LYRICA [Suspect]
     Dosage: UNK
  2. XANAX [Suspect]
     Dosage: UNK
  3. XANAX XR [Suspect]
     Dosage: UNK

REACTIONS (4)
  - Blood growth hormone abnormal [Unknown]
  - Immune system disorder [Unknown]
  - Feeling drunk [Unknown]
  - Hypersensitivity [Unknown]
